FAERS Safety Report 6681423-7 (Version None)
Quarter: 2010Q2

REPORT INFORMATION
  Report Type: 
  Country: None (occurrence: None)
  Receive Date: 20100414
  Receipt Date: 20091221
  Transmission Date: 20101027
  Serious: No
  Sender: FDA-Public Use
  Company Number: US-ASTRAZENECA-2009SE33002

PATIENT
  Sex: Female

DRUGS (1)
  1. LISINOPRIL AND HYDROCHLOROTHIAZIDE [Suspect]
     Dosage: 20MG/12.5MG
     Route: 048

REACTIONS (3)
  - CHOKING [None]
  - COUGH [None]
  - RETCHING [None]
